FAERS Safety Report 19744288 (Version 1)
Quarter: 2021Q3

REPORT INFORMATION
  Report Type: Spontaneous
  Country: US (occurrence: US)
  Receive Date: 20210823
  Receipt Date: 20210823
  Transmission Date: 20211014
  Serious: Yes (Hospitalization)
  Sender: FDA-Public Use
  Company Number: None

PATIENT
  Sex: Male
  Weight: 84.15 kg

DRUGS (17)
  1. METOPROLOL. [Concomitant]
     Active Substance: METOPROLOL
  2. TAMSULOSIN [Concomitant]
     Active Substance: TAMSULOSIN
  3. OXBUTYNIN [Concomitant]
  4. FERROUS GLLUCONATE [Concomitant]
  5. VENLAFAXINE [Concomitant]
     Active Substance: VENLAFAXINE HYDROCHLORIDE
  6. MONTELUKAST [Concomitant]
     Active Substance: MONTELUKAST SODIUM
  7. PREDNISONE. [Concomitant]
     Active Substance: PREDNISONE
  8. VITAMIN D2 [Concomitant]
     Active Substance: ERGOCALCIFEROL
  9. COLACE [Concomitant]
     Active Substance: DOCUSATE SODIUM
  10. LOSARTAN. [Concomitant]
     Active Substance: LOSARTAN
  11. NITROSTAT [Concomitant]
     Active Substance: NITROGLYCERIN
  12. CRESTOR [Concomitant]
     Active Substance: ROSUVASTATIN CALCIUM
  13. ERLEADA [Concomitant]
     Active Substance: APALUTAMIDE
  14. MORPHINE [Concomitant]
     Active Substance: MORPHINE
  15. REPATHA [Concomitant]
     Active Substance: EVOLOCUMAB
  16. ABIRATERONE ACETATE. [Suspect]
     Active Substance: ABIRATERONE ACETATE
     Indication: PROSTATE CANCER
     Route: 048
  17. PANTOPRAZOLE [Concomitant]
     Active Substance: PANTOPRAZOLE

REACTIONS (1)
  - Cellulitis [None]
